FAERS Safety Report 17520087 (Version 1)
Quarter: 2020Q1

REPORT INFORMATION
  Report Type: Spontaneous
  Country: US (occurrence: US)
  Receive Date: 20200228
  Receipt Date: 20200228
  Transmission Date: 20200409
  Serious: Yes (Disabling, Other)
  Sender: FDA-Public Use
  Company Number: None

PATIENT
  Age: 70 Year
  Sex: Female
  Weight: 65.77 kg

DRUGS (8)
  1. METHOTREXATE. [Concomitant]
     Active Substance: METHOTREXATE
  2. MAGNESIUM [Concomitant]
     Active Substance: MAGNESIUM
  3. ORENCIA [Suspect]
     Active Substance: ABATACEPT
     Indication: RHEUMATOID ARTHRITIS
     Dosage: ?          OTHER ROUTE:IV INFUSED ONCE A MO. AT BANNER BAYWOOD  OUTPATIENT??3.1/2 YRS.?
     Route: 042
     Dates: start: 20170101
  4. CALCIUM [Concomitant]
     Active Substance: CALCIUM
  5. FOLIC ACID. [Concomitant]
     Active Substance: FOLIC ACID
  6. VIT D [Concomitant]
     Active Substance: VITAMIN D NOS
  7. SELENIUM [Concomitant]
     Active Substance: SELENIUM
  8. VALACYCLOVIR [Concomitant]
     Active Substance: VALACYCLOVIR HYDROCHLORIDE

REACTIONS (1)
  - Diabetes mellitus [None]

NARRATIVE: CASE EVENT DATE: 20190301
